FAERS Safety Report 7906293-8 (Version None)
Quarter: 2011Q4

REPORT INFORMATION
  Report Type: 
  Country: None (occurrence: None)
  Receive Date: 20111109
  Receipt Date: 20111109
  Transmission Date: 20120403
  Serious: Yes (Disabling, Other)
  Sender: FDA-Public Use
  Company Number: None

PATIENT
  Sex: Female
  Weight: 63.5036 kg

DRUGS (1)
  1. MULTAQ [Suspect]
     Indication: ATRIAL FIBRILLATION
     Dosage: 400 MG TWICE DAILY MOUTH
     Route: 048
     Dates: start: 20100918, end: 20100926

REACTIONS (4)
  - ABASIA [None]
  - ASTHMA [None]
  - WEIGHT INCREASED [None]
  - MUSCULOSKELETAL PAIN [None]
